FAERS Safety Report 25406372 (Version 1)
Quarter: 2025Q2

REPORT INFORMATION
  Report Type: Spontaneous
  Country: GB (occurrence: GB)
  Receive Date: 20250606
  Receipt Date: 20250606
  Transmission Date: 20250716
  Serious: Yes (Other)
  Sender: ZAMBON
  Company Number: GB-ZAMBON SWITZERLAND LTD.-2025-ZAM-GB000016

PATIENT

DRUGS (5)
  1. FOSFOMYCIN TROMETHAMINE [Suspect]
     Active Substance: FOSFOMYCIN TROMETHAMINE
     Indication: Urinary tract infection bacterial
     Route: 065
     Dates: start: 20250213, end: 20250215
  2. FOSFOMYCIN TROMETHAMINE [Suspect]
     Active Substance: FOSFOMYCIN TROMETHAMINE
     Indication: Raoultella ornithinolytica infection
     Route: 065
  3. LANSOPRAZOLE [Concomitant]
     Active Substance: LANSOPRAZOLE
     Indication: Gastrooesophageal reflux disease
     Route: 065
     Dates: start: 20050501
  4. FINASTERIDE [Concomitant]
     Active Substance: FINASTERIDE
     Indication: Bladder catheterisation
     Route: 065
     Dates: start: 20150801
  5. TAMSULOSIN [Concomitant]
     Active Substance: TAMSULOSIN
     Indication: Bladder catheterisation
     Route: 065
     Dates: start: 20150801

REACTIONS (3)
  - Monoplegia [Recovered/Resolved with Sequelae]
  - Medication error [Unknown]
  - Off label use [Unknown]

NARRATIVE: CASE EVENT DATE: 20250405
